FAERS Safety Report 21370946 (Version 3)
Quarter: 2022Q4

REPORT INFORMATION
  Report Type: Report from Study
  Country: IL (occurrence: IL)
  Receive Date: 20220923
  Receipt Date: 20221012
  Transmission Date: 20230113
  Serious: Yes (Death, Hospitalization)
  Sender: FDA-Public Use
  Company Number: IL-ABBVIE-21K-082-4158361-00

PATIENT
  Age: 78 Year
  Sex: Female
  Weight: 70 kg

DRUGS (18)
  1. VENCLEXTA [Suspect]
     Active Substance: VENETOCLAX
     Indication: Acute myeloid leukaemia
     Route: 048
     Dates: start: 20211005, end: 20211005
  2. VENCLEXTA [Suspect]
     Active Substance: VENETOCLAX
     Indication: Acute myeloid leukaemia
     Route: 048
     Dates: start: 20211006, end: 20211006
  3. VENCLEXTA [Suspect]
     Active Substance: VENETOCLAX
     Indication: Acute myeloid leukaemia
     Route: 048
     Dates: start: 20211007, end: 20211110
  4. VENCLEXTA [Suspect]
     Active Substance: VENETOCLAX
     Indication: Acute myeloid leukaemia
     Route: 048
     Dates: start: 20200210
  5. DECITABINE [Suspect]
     Active Substance: DECITABINE
     Indication: Acute myeloid leukaemia
     Route: 042
     Dates: start: 20211003, end: 20211007
  6. DECITABINE [Suspect]
     Active Substance: DECITABINE
     Indication: Acute myeloid leukaemia
     Route: 042
     Dates: start: 20211031, end: 20211104
  7. ALLOPURINOL [Concomitant]
     Active Substance: ALLOPURINOL
     Indication: Hypouricaemia
     Dates: start: 20200911, end: 20211102
  8. ALLOPURINOL [Concomitant]
     Active Substance: ALLOPURINOL
     Indication: Hypouricaemia
     Dates: start: 20200911, end: 20211102
  9. LANTON [Concomitant]
     Indication: Dyspepsia
     Dates: start: 20200210
  10. LANTON [Concomitant]
     Indication: Dyspepsia
     Dates: start: 20200210
  11. Nistatin DELETED [Concomitant]
     Indication: Rash
  12. SIMVASTATIN [Concomitant]
     Active Substance: SIMVASTATIN
     Indication: Vascular disorder prophylaxis
     Dates: start: 20170926
  13. Simvastatin - Teva [Concomitant]
     Indication: Vascular disorder prophylaxis
     Dates: start: 20170926
  14. PFIZER-BIONTECH COVID-19 VACCINE [Concomitant]
     Active Substance: TOZINAMERAN
     Indication: COVID-19 immunisation
     Dosage: ONCE
     Route: 030
     Dates: start: 2021, end: 2021
  15. LORAZEPAM [Concomitant]
     Active Substance: LORAZEPAM
     Indication: Insomnia
     Dates: start: 20200210
  16. BETAHISTINE [Concomitant]
     Active Substance: BETAHISTINE
     Indication: Dizziness
     Dates: start: 20211105
  17. BETAHISTINE [Concomitant]
     Active Substance: BETAHISTINE
     Indication: Dizziness
  18. Phizer vaccinetion [Concomitant]
     Indication: COVID-19 prophylaxis
     Dates: start: 2021, end: 2021

REACTIONS (7)
  - Acute myeloid leukaemia recurrent [Fatal]
  - Therapy non-responder [Unknown]
  - Pyrexia [Recovered/Resolved]
  - Asthenia [Not Recovered/Not Resolved]
  - Rash [Not Recovered/Not Resolved]
  - Dizziness [Not Recovered/Not Resolved]
  - Disease progression [Fatal]

NARRATIVE: CASE EVENT DATE: 20211005
